FAERS Safety Report 8845309 (Version 5)
Quarter: 2013Q3

REPORT INFORMATION
  Report Type: Spontaneous
  Country: FR (occurrence: FR)
  Receive Date: 20121017
  Receipt Date: 20130917
  Transmission Date: 20140515
  Serious: Yes (Other)
  Sender: FDA-Public Use
  Company Number: FR-JNJFOC-20121002631

PATIENT
  Age: 32 Year
  Sex: Female

DRUGS (1)
  1. RISPERDAL CONSTA [Suspect]
     Indication: ACCIDENTAL EXPOSURE TO PRODUCT
     Route: 030
     Dates: start: 20120920, end: 20120920

REACTIONS (4)
  - Accidental exposure to product [Unknown]
  - Exposure during pregnancy [Recovered/Resolved]
  - Needle issue [Unknown]
  - Device leakage [Unknown]
